FAERS Safety Report 10534315 (Version 1)
Quarter: 2014Q4

REPORT INFORMATION
  Report Type: Spontaneous
  Country: IT (occurrence: IT)
  Receive Date: 20141022
  Receipt Date: 20141022
  Transmission Date: 20150529
  Serious: Yes (Disabling, Other)
  Sender: FDA-Public Use
  Company Number: IT-WATSON-2014-22285

PATIENT
  Age: 51 Year
  Sex: Male

DRUGS (3)
  1. LEVODOPA [Suspect]
     Active Substance: LEVODOPA
     Indication: PARKINSON^S DISEASE
     Dosage: 700 MG, DAILY
     Route: 065
  2. PRAMIPEXOLE (UNKNOWN) [Suspect]
     Active Substance: PRAMIPEXOLE
     Dosage: 3.15 MG, DAILY
     Route: 065
  3. PRAMIPEXOLE (UNKNOWN) [Suspect]
     Active Substance: PRAMIPEXOLE
     Indication: PARKINSON^S DISEASE
     Dosage: 0.7 MG, QID
     Route: 065

REACTIONS (4)
  - Dyskinesia [Unknown]
  - Overdose [Not Recovered/Not Resolved]
  - Dopamine dysregulation syndrome [Unknown]
  - Drug abuse [Not Recovered/Not Resolved]
